FAERS Safety Report 4764409-9 (Version None)
Quarter: 2005Q3

REPORT INFORMATION
  Report Type: 
  Country: None (occurrence: None)
  Receive Date: 20050906
  Receipt Date: 20050829
  Transmission Date: 20060218
  Serious: Yes (Other)
  Sender: FDA-Public Use
  Company Number: 2005111501

PATIENT
  Age: 28 Year
  Sex: Female

DRUGS (4)
  1. SOLU-MEDROL [Suspect]
     Indication: DEMYELINATION
     Dosage: 1 GRAM (1 GRAM, 1 IN 1 D), INTRAVENOUS
     Route: 042
     Dates: start: 20050729, end: 20050729
  2. TRAMADOL HCL [Concomitant]
  3. ULTRACET [Concomitant]
  4. ACETYLSALICYLIC ACID SRT [Concomitant]

REACTIONS (4)
  - ANGIONEUROTIC OEDEMA [None]
  - BLISTER [None]
  - DYSGEUSIA [None]
  - INFUSION RELATED REACTION [None]
